FAERS Safety Report 24669388 (Version 1)
Quarter: 2024Q4

REPORT INFORMATION
  Report Type: Spontaneous
  Country: US (occurrence: US)
  Receive Date: 20241127
  Receipt Date: 20241127
  Transmission Date: 20250114
  Serious: No
  Sender: TARO
  Company Number: US-TARO PHARMACEUTICALS USA INC.-2023TAR01197

PATIENT

DRUGS (1)
  1. CLOBETASOL PROPIONATE [Suspect]
     Active Substance: CLOBETASOL PROPIONATE
     Indication: Psoriasis
     Dosage: UNK, ON MY HEAD
     Route: 061
     Dates: start: 202310

REACTIONS (4)
  - Inappropriate schedule of product administration [Unknown]
  - Product quality issue [Unknown]
  - Product physical consistency issue [Unknown]
  - Drug ineffective [Unknown]
